FAERS Safety Report 16578490 (Version 2)
Quarter: 2019Q3

REPORT INFORMATION
  Report Type: Spontaneous
  Country: US (occurrence: US)
  Receive Date: 20190716
  Receipt Date: 20190719
  Transmission Date: 20191004
  Serious: Yes (Life-Threatening, Other)
  Sender: FDA-Public Use
  Company Number: US-PFIZER INC-2019299174

PATIENT
  Age: 57 Year
  Sex: Female

DRUGS (16)
  1. NALOXONE HCL [Suspect]
     Active Substance: NALOXONE HYDROCHLORIDE
     Indication: THROMBOTIC STROKE
     Dosage: UNK
  2. NALOXONE HCL [Suspect]
     Active Substance: NALOXONE HYDROCHLORIDE
     Indication: VENTRICULAR TACHYCARDIA
  3. CALCIUM [Suspect]
     Active Substance: CALCIUM
     Indication: PULSELESS ELECTRICAL ACTIVITY
  4. TPA [Suspect]
     Active Substance: ALTEPLASE
     Indication: THROMBOTIC STROKE
     Dosage: UNK
  5. EPINEPHRINE. [Suspect]
     Active Substance: EPINEPHRINE
     Indication: VENTRICULAR TACHYCARDIA
  6. EPINEPHRINE. [Suspect]
     Active Substance: EPINEPHRINE
     Indication: CARDIAC ARREST
  7. CALCIUM [Suspect]
     Active Substance: CALCIUM
     Indication: THROMBOTIC STROKE
     Dosage: UNK
  8. CALCIUM [Suspect]
     Active Substance: CALCIUM
     Indication: CARDIAC ARREST
  9. EPINEPHRINE. [Suspect]
     Active Substance: EPINEPHRINE
     Indication: PULSELESS ELECTRICAL ACTIVITY
  10. NALOXONE HCL [Suspect]
     Active Substance: NALOXONE HYDROCHLORIDE
     Indication: CARDIAC ARREST
  11. TPA [Suspect]
     Active Substance: ALTEPLASE
     Indication: VENTRICULAR TACHYCARDIA
  12. EPINEPHRINE. [Suspect]
     Active Substance: EPINEPHRINE
     Indication: THROMBOTIC STROKE
     Dosage: UNK
  13. NALOXONE HCL [Suspect]
     Active Substance: NALOXONE HYDROCHLORIDE
     Indication: PULSELESS ELECTRICAL ACTIVITY
  14. CALCIUM [Suspect]
     Active Substance: CALCIUM
     Indication: VENTRICULAR TACHYCARDIA
  15. TPA [Suspect]
     Active Substance: ALTEPLASE
     Indication: PULSELESS ELECTRICAL ACTIVITY
  16. TPA [Suspect]
     Active Substance: ALTEPLASE
     Indication: CARDIAC ARREST

REACTIONS (1)
  - Drug ineffective [Not Recovered/Not Resolved]
